FAERS Safety Report 20443214 (Version 3)
Quarter: 2022Q2

REPORT INFORMATION
  Report Type: Spontaneous
  Country: GB (occurrence: GB)
  Receive Date: 20220208
  Receipt Date: 20220520
  Transmission Date: 20220720
  Serious: Yes (Other)
  Sender: FDA-Public Use
  Company Number: None

PATIENT
  Sex: Male

DRUGS (2)
  1. NEBIVOLOL [Suspect]
     Active Substance: NEBIVOLOL
     Indication: Atrial fibrillation
     Dosage: UNKNOWN
     Route: 065
  2. ONPATTRO [Suspect]
     Active Substance: PATISIRAN SODIUM
     Indication: Amyloidosis
     Dosage: 17 MILLIGRAM/8.5 ML, Q3W
     Route: 042

REACTIONS (5)
  - Blood pressure decreased [Recovered/Resolved]
  - Atrial fibrillation [Unknown]
  - Dizziness [Unknown]
  - Gait disturbance [Unknown]
  - Off label use [Unknown]
